FAERS Safety Report 5880870-0 (Version None)
Quarter: 2008Q3

REPORT INFORMATION
  Report Type: 
  Country: None (occurrence: None)
  Receive Date: 20080912
  Receipt Date: 20080624
  Transmission Date: 20090109
  Serious: No
  Sender: FDA-Public Use
  Company Number: US-ABBOTT-08P-163-0456738-00

PATIENT
  Sex: Female
  Weight: 109.09 kg

DRUGS (11)
  1. HUMIRA [Suspect]
     Indication: RHEUMATOID ARTHRITIS
     Route: 058
     Dates: start: 20060101, end: 20080501
  2. HUMIRA [Suspect]
  3. NORTASE [Concomitant]
     Indication: SYNCOPE
     Dosage: DAILY
     Route: 048
  4. NADOLOL [Concomitant]
     Indication: HEART RATE IRREGULAR
     Dosage: DAILY
     Route: 048
  5. THYROID TAB [Concomitant]
     Indication: HYPOTHYROIDISM
     Dosage: DAILY
     Route: 048
  6. LORTAB [Concomitant]
     Indication: RHEUMATOID ARTHRITIS
     Route: 048
  7. LORTAB [Concomitant]
     Indication: PAIN
  8. PROPACET 100 [Concomitant]
     Indication: CELLULITIS
     Dosage: HALF TAB THREE TIMES A DAY AS NEEDED
     Route: 048
     Dates: start: 20080601
  9. PROPACET 100 [Concomitant]
     Indication: PAIN
  10. CLONAZEPAM [Concomitant]
     Indication: INSOMNIA
     Dosage: AT BED TIME
     Route: 048
  11. DULOXETINE HYDROCHLORIDE [Concomitant]
     Indication: INSOMNIA
     Dosage: AT BED TIME
     Route: 048

REACTIONS (3)
  - CELLULITIS [None]
  - LOCALISED INFECTION [None]
  - RASH MACULAR [None]
